FAERS Safety Report 5963153-X (Version None)
Quarter: 2008Q4

REPORT INFORMATION
  Report Type: 
  Country: None (occurrence: None)
  Receive Date: 20081120
  Receipt Date: 20081120
  Transmission Date: 20090506
  Serious: Yes (Hospitalization)
  Sender: FDA-Public Use
  Company Number: None

PATIENT
  Age: 63 Year
  Sex: Male
  Weight: 60.2 kg

DRUGS (14)
  1. ZYPREXA [Suspect]
     Dates: start: 20080925, end: 20081108
  2. SIMVASTATIN [Concomitant]
  3. HYDROCHLOROTHIAZIDE [Concomitant]
  4. DEPAKOTE ER [Concomitant]
  5. FLUDROCORTISONE ACETATE [Concomitant]
  6. GEMFIBROZIL [Concomitant]
  7. LORAZEPAM [Concomitant]
  8. METOPROLOL TARTRATE [Concomitant]
  9. ASPIRIN [Concomitant]
  10. NIACIN [Concomitant]
  11. VITAMIN D [Concomitant]
  12. FISH OIL [Concomitant]
  13. MULTI-VITAMIN [Concomitant]
  14. SAW PALMETTO [Concomitant]

REACTIONS (6)
  - CONFUSIONAL STATE [None]
  - DIABETIC KETOACIDOSIS [None]
  - HALLUCINATION, VISUAL [None]
  - HYPOPHAGIA [None]
  - LETHARGY [None]
  - POLLAKIURIA [None]
